FAERS Safety Report 7231036-3 (Version None)
Quarter: 2011Q1

REPORT INFORMATION
  Report Type: 
  Country: None (occurrence: None)
  Receive Date: 20110118
  Receipt Date: 20110105
  Transmission Date: 20110831
  Serious: Yes (Hospitalization, Other)
  Sender: FDA-Public Use
  Company Number: US-ELI_LILLY_AND_COMPANY-US201101001507

PATIENT
  Age: 55 Year
  Sex: Male

DRUGS (3)
  1. ZYPREXA [Suspect]
     Indication: SCHIZOPHRENIA
     Dosage: UNK, UNK
  2. HALDOL [Concomitant]
     Dosage: UNK, MONTHLY (1/M)
     Route: 030
  3. ANTIHYPERTENSIVES [Concomitant]
     Indication: BLOOD PRESSURE

REACTIONS (8)
  - INTENTIONAL DRUG MISUSE [None]
  - MUTISM [None]
  - STUPOR [None]
  - DEHYDRATION [None]
  - MENTAL DISORDER [None]
  - ANOSOGNOSIA [None]
  - DECREASED APPETITE [None]
  - RENAL FAILURE [None]
